FAERS Safety Report 5872971-8 (Version None)
Quarter: 2008Q3

REPORT INFORMATION
  Report Type: 
  Country: None (occurrence: None)
  Receive Date: 20080905
  Receipt Date: 20080826
  Transmission Date: 20090109
  Serious: Yes (Other)
  Sender: FDA-Public Use
  Company Number: GB-PFIZER INC-2008071806

PATIENT
  Sex: Male

DRUGS (1)
  1. PHENYTOIN [Suspect]
     Route: 048

REACTIONS (3)
  - ILL-DEFINED DISORDER [None]
  - MEDICAL DIET [None]
  - SURGERY [None]
